FAERS Safety Report 9543314 (Version 2)
Quarter: 2013Q3

REPORT INFORMATION
  Report Type: Spontaneous
  Country: FR (occurrence: FR)
  Receive Date: 20130923
  Receipt Date: 20130923
  Transmission Date: 20140515
  Serious: Yes (Hospitalization, Other)
  Sender: FDA-Public Use
  Company Number: FR-009507513-2011SP056386

PATIENT
  Age: 55 Year
  Sex: Male
  Weight: 82 kg

DRUGS (3)
  1. DIPROSTENE [Suspect]
     Indication: TENDONITIS
     Dosage: 1 DF, ONCE
     Dates: start: 20111203, end: 20111203
  2. CRESTOR [Concomitant]
     Indication: BLOOD CHOLESTEROL
     Dosage: 5 MG, QPM
     Route: 048
     Dates: start: 2009
  3. LEVOTHYROX [Concomitant]
     Indication: THYROID DISORDER
     Dosage: 75 MICROGRAM, QAM
     Route: 048

REACTIONS (8)
  - Muscle spasms [Recovered/Resolved]
  - Burning sensation [Recovered/Resolved]
  - Agitation [Recovered/Resolved]
  - Tremor [Recovered/Resolved]
  - Hypertension [Recovered/Resolved]
  - Hyperhidrosis [Recovered/Resolved]
  - Feeling abnormal [Recovered/Resolved]
  - Loss of consciousness [Recovered/Resolved]
